FAERS Safety Report 6209915-5 (Version None)
Quarter: 2009Q2

REPORT INFORMATION
  Report Type: 
  Country: None (occurrence: None)
  Receive Date: 20090601
  Receipt Date: 20090521
  Transmission Date: 20091009
  Serious: Yes (Life-Threatening, Other)
  Sender: FDA-Public Use
  Company Number: MX-PFIZER INC-2009217268

PATIENT
  Age: 44 Year

DRUGS (1)
  1. CELEBREX [Suspect]
     Indication: MYALGIA
     Route: 048
     Dates: start: 20080530, end: 20080530

REACTIONS (1)
  - ANAPHYLACTIC SHOCK [None]
